FAERS Safety Report 16449272 (Version 4)
Quarter: 2019Q3

REPORT INFORMATION
  Report Type: Spontaneous
  Country: LT (occurrence: LT)
  Receive Date: 20190619
  Receipt Date: 20190919
  Transmission Date: 20191004
  Serious: Yes (Hospitalization, Other)
  Sender: FDA-Public Use
  Company Number: LT-GLAXOSMITHKLINE-LT2019109382

PATIENT
  Age: 46 Year
  Sex: Male

DRUGS (24)
  1. DELAMANID [Suspect]
     Active Substance: DELAMANID
     Dosage: 200 MG, QD
     Route: 048
     Dates: start: 20190301, end: 20190301
  2. CYCLOSERINE. [Concomitant]
     Active Substance: CYCLOSERINE
     Dosage: 500 MG, QD
     Route: 048
     Dates: start: 20190528
  3. LINEZOLID. [Concomitant]
     Active Substance: LINEZOLID
     Indication: PRODUCT USED FOR UNKNOWN INDICATION
     Dosage: 600 MG, QD
     Route: 048
     Dates: start: 20181219, end: 20190210
  4. LINEZOLID. [Concomitant]
     Active Substance: LINEZOLID
     Dosage: 600 MG, QD
     Route: 048
     Dates: start: 20190218, end: 20190219
  5. AMIKACIN SULFATE. [Suspect]
     Active Substance: AMIKACIN SULFATE
     Indication: PRODUCT USED FOR UNKNOWN INDICATION
     Dosage: 1 G, QD
     Route: 030
     Dates: start: 20181219, end: 20190207
  6. CYCLOSERINE. [Concomitant]
     Active Substance: CYCLOSERINE
     Indication: PRODUCT USED FOR UNKNOWN INDICATION
     Dosage: 750 MG, QD
     Route: 048
     Dates: start: 20181219, end: 20190207
  7. DICLOFENAC SODIUM. [Suspect]
     Active Substance: DICLOFENAC SODIUM
     Indication: CHEST PAIN
     Dosage: 75 MG, UNK
     Route: 030
     Dates: start: 20181228, end: 20181228
  8. DELAMANID [Suspect]
     Active Substance: DELAMANID
     Indication: PULMONARY TUBERCULOSIS
     Dosage: 200 MG, QD
     Route: 048
     Dates: start: 20190218, end: 20190219
  9. PROTHIONAMIDE [Concomitant]
     Active Substance: PROTIONAMIDE
     Indication: PRODUCT USED FOR UNKNOWN INDICATION
     Dosage: 750 MG, QD
     Route: 048
     Dates: start: 20190109, end: 20190210
  10. PROTHIONAMIDE [Concomitant]
     Active Substance: PROTIONAMIDE
     Dosage: 750 MG, QD
     Route: 048
     Dates: start: 20190325, end: 20190503
  11. DELAMANID [Suspect]
     Active Substance: DELAMANID
     Dosage: 200 MG, BID
     Route: 048
     Dates: start: 20190318
  12. METOCLOPRAMIDE. [Concomitant]
     Active Substance: METOCLOPRAMIDE
     Dosage: 10 MG, QD
     Route: 048
     Dates: start: 20190503, end: 20190503
  13. DICLOFENAC (DICLOFENAC SODIUM) [Suspect]
     Active Substance: DICLOFENAC SODIUM
     Indication: CHEST PAIN
     Dosage: 75 MG, QD
     Route: 048
     Dates: start: 20181228, end: 20190107
  14. DELAMANID [Suspect]
     Active Substance: DELAMANID
     Indication: PULMONARY TUBERCULOSIS
     Dosage: 200 MG, QD
     Route: 048
     Dates: start: 20190109, end: 20190207
  15. METOCLOPRAMIDE. [Concomitant]
     Active Substance: METOCLOPRAMIDE
     Indication: NAUSEA
     Dosage: 10 MG, QD
     Route: 048
     Dates: start: 20181228, end: 20190209
  16. PROTHIONAMIDE [Concomitant]
     Active Substance: PROTIONAMIDE
     Dosage: 750 MG, QD
     Route: 048
     Dates: start: 20190218, end: 20190219
  17. PROTHIONAMIDE [Concomitant]
     Active Substance: PROTIONAMIDE
     Dosage: 750 MG, QD  (IN THE MORNING)
     Route: 048
     Dates: start: 20190301, end: 20190301
  18. CYCLOSERINE. [Concomitant]
     Active Substance: CYCLOSERINE
     Dosage: 750 MG, QD
     Route: 048
     Dates: start: 20190218, end: 20190219
  19. CYCLOSERINE. [Concomitant]
     Active Substance: CYCLOSERINE
     Dosage: 750 MG, QD (IN THE MORNING)
     Route: 048
     Dates: start: 20190301, end: 20190301
  20. LINEZOLID. [Concomitant]
     Active Substance: LINEZOLID
     Dosage: 600 MG, QD  (IN THE MORNING)
     Route: 048
     Dates: start: 20190301, end: 20190301
  21. LINEZOLID. [Concomitant]
     Active Substance: LINEZOLID
     Dosage: 600 MG, QD
     Route: 048
     Dates: start: 20190318, end: 20190527
  22. CYCLOSERINE. [Concomitant]
     Active Substance: CYCLOSERINE
     Dosage: 500 MG, QD
     Route: 048
     Dates: start: 20190328, end: 20190521
  23. KETOPROFEN. [Suspect]
     Active Substance: KETOPROFEN
     Indication: CHEST PAIN
     Dosage: 100 MG, QD
     Route: 030
     Dates: start: 20181230, end: 20190205
  24. METOCLOPRAMIDE. [Concomitant]
     Active Substance: METOCLOPRAMIDE
     Dosage: 10 MG, QD
     Route: 048
     Dates: start: 20190526, end: 20190527

REACTIONS (5)
  - Asthenia [Not Recovered/Not Resolved]
  - Acute kidney injury [Recovered/Resolved with Sequelae]
  - Vomiting [Recovered/Resolved]
  - Pyopneumothorax [Recovered/Resolved with Sequelae]
  - Incorrect product administration duration [Unknown]

NARRATIVE: CASE EVENT DATE: 20190124
